FAERS Safety Report 24860210 (Version 1)
Quarter: 2025Q1

REPORT INFORMATION
  Report Type: Spontaneous
  Country: US (occurrence: US)
  Receive Date: 20250120
  Receipt Date: 20250120
  Transmission Date: 20250408
  Serious: No
  Sender: APOTEX
  Company Number: US-APOTEX-2023AP018273

PATIENT
  Sex: Female

DRUGS (3)
  1. PAXIL [Suspect]
     Active Substance: PAROXETINE HYDROCHLORIDE
     Indication: Product used for unknown indication
     Route: 065
  2. PAXIL [Suspect]
     Active Substance: PAROXETINE HYDROCHLORIDE
     Route: 065
  3. PAROXETINE [Suspect]
     Active Substance: PAROXETINE
     Indication: Product used for unknown indication
     Route: 065

REACTIONS (3)
  - Anxiety [Unknown]
  - Wrong technique in product usage process [Unknown]
  - Dizziness [Unknown]
